FAERS Safety Report 6382929-0 (Version None)
Quarter: 2009Q3

REPORT INFORMATION
  Report Type: 
  Country: None (occurrence: None)
  Receive Date: 20090930
  Receipt Date: 20090917
  Transmission Date: 20100115
  Serious: Yes (Other)
  Sender: FDA-Public Use
  Company Number: AU-PFIZER INC-2009270064

PATIENT

DRUGS (1)
  1. XALATAN [Suspect]
     Indication: INTRAOCULAR PRESSURE INCREASED
     Dosage: 1 DROP AT NIGHT INTO BOTH EYES
     Route: 047
     Dates: start: 20090501

REACTIONS (3)
  - CONSTIPATION [None]
  - INFECTION [None]
  - TESTICULAR SWELLING [None]
